FAERS Safety Report 9540469 (Version 6)
Quarter: 2017Q4

REPORT INFORMATION
  Report Type: Report from Study
  Country: US (occurrence: US)
  Receive Date: 20130920
  Receipt Date: 20171107
  Transmission Date: 20180321
  Serious: Yes (Hospitalization, Other)
  Sender: FDA-Public Use
  Company Number: PHHO2013US012010

PATIENT
  Age: 58 Year
  Sex: Male
  Weight: 122.5 kg

DRUGS (3)
  1. METOPROLOL. [Suspect]
     Active Substance: METOPROLOL
     Indication: PRODUCT USED FOR UNKNOWN INDICATION
     Dosage: 50 MG, BID
     Route: 048
     Dates: start: 20020101, end: 20130912
  2. ILARIS [Suspect]
     Active Substance: CANAKINUMAB
     Indication: CARDIOVASCULAR EVENT PROPHYLAXIS
     Dosage: 300 MG, UNK
     Route: 058
     Dates: start: 20131014
  3. METOPROLOL. [Suspect]
     Active Substance: METOPROLOL
     Dosage: 25 MG, BID
     Route: 048
     Dates: start: 20130912

REACTIONS (2)
  - Fatigue [Recovered/Resolved]
  - Asthenia [Recovered/Resolved]

NARRATIVE: CASE EVENT DATE: 20130911
